FAERS Safety Report 8312984-X (Version None)
Quarter: 2012Q2

REPORT INFORMATION
  Report Type: 
  Country: None (occurrence: None)
  Receive Date: 20120426
  Receipt Date: 20120419
  Transmission Date: 20120825
  Serious: Yes (Other)
  Sender: FDA-Public Use
  Company Number: US-SANOFI-AVENTIS-2012SA027993

PATIENT
  Age: 67 Year
  Sex: Female

DRUGS (3)
  1. SOLOSTAR [Suspect]
  2. LANTUS [Suspect]
     Dosage: DOSE:25 UNIT(S)
     Route: 058
  3. NOVOLOG [Concomitant]

REACTIONS (2)
  - GASTROENTERITIS VIRAL [None]
  - ANKLE FRACTURE [None]
